FAERS Safety Report 21410681 (Version 1)
Quarter: 2022Q4

REPORT INFORMATION
  Report Type: Spontaneous
  Country: US (occurrence: None)
  Receive Date: 20221004
  Receipt Date: 20221004
  Transmission Date: 20230113
  Serious: Yes (Hospitalization)
  Sender: FDA-Public Use
  Company Number: None

PATIENT
  Age: 77 Year
  Sex: Male
  Weight: 120 kg

DRUGS (2)
  1. APIXABAN [Suspect]
     Active Substance: APIXABAN
     Indication: Atrial fibrillation
     Dosage: FREQUENCY : TWICE A DAY;?
     Route: 048
     Dates: start: 20190125, end: 20220924
  2. ASPIRIN 81MG [Suspect]
     Active Substance: ASPIRIN
     Indication: Cerebrovascular accident prophylaxis

REACTIONS (2)
  - Haematuria [None]
  - Haemorrhage [None]

NARRATIVE: CASE EVENT DATE: 20220921
